FAERS Safety Report 10184247 (Version 1)
Quarter: 2014Q2

REPORT INFORMATION
  Report Type: Spontaneous
  Country: US (occurrence: US)
  Receive Date: 20140520
  Receipt Date: 20140520
  Transmission Date: 20141212
  Serious: No
  Sender: FDA-Public Use
  Company Number: US-ASTRAZENECA-2014SE04187

PATIENT
  Age: 72 Year
  Sex: Male
  Weight: 122.5 kg

DRUGS (7)
  1. RHINOCORT AQUA [Suspect]
     Indication: SLEEP APNOEA SYNDROME
     Dosage: 2 SPRAYS PER NOSTRIL BID
     Route: 045
  2. RHINOCORT AQUA [Suspect]
     Indication: ASTHMA
     Dosage: 2 SPRAYS PER NOSTRIL BID
     Route: 045
  3. RHINOCORT AQUA [Suspect]
     Indication: MULTIPLE ALLERGIES
     Dosage: 2 SPRAYS PER NOSTRIL BID
     Route: 045
  4. SPIRIVA [Concomitant]
     Indication: MULTIPLE ALLERGIES
     Dosage: 1 INHALTION DAILY
     Route: 065
  5. SPIRIVA [Concomitant]
     Indication: ASTHMA
     Dosage: 1 INHALTION DAILY
     Route: 065
  6. ASTELIN [Concomitant]
     Indication: MULTIPLE ALLERGIES
     Route: 045
  7. ASTELIN [Concomitant]
     Indication: ASTHMA
     Route: 045

REACTIONS (2)
  - Hypoacusis [Unknown]
  - Circumstance or information capable of leading to device use error [Unknown]
